FAERS Safety Report 22619226 (Version 1)
Quarter: 2023Q2

REPORT INFORMATION
  Report Type: Spontaneous
  Country: US (occurrence: US)
  Receive Date: 20230620
  Receipt Date: 20230620
  Transmission Date: 20230722
  Serious: Yes (Other)
  Sender: FDA-Public Use
  Company Number: US-drreddys-SPO/USA/23/0167174

PATIENT
  Age: 14 Year

DRUGS (1)
  1. ISOTRETINOIN [Suspect]
     Active Substance: ISOTRETINOIN
     Indication: Product used for unknown indication

REACTIONS (10)
  - Mood swings [Unknown]
  - Feeling of despair [Unknown]
  - Insomnia [Unknown]
  - Depression [Unknown]
  - Xerosis [Unknown]
  - Headache [Unknown]
  - Abdominal pain upper [Unknown]
  - Cheilitis [Unknown]
  - Myalgia [Unknown]
  - Product dose omission issue [Unknown]
